FAERS Safety Report 7132054-6 (Version None)
Quarter: 2010Q4

REPORT INFORMATION
  Report Type: 
  Country: None (occurrence: None)
  Receive Date: 20101202
  Receipt Date: 20101118
  Transmission Date: 20110411
  Serious: Yes (Other)
  Sender: FDA-Public Use
  Company Number: PHFR2010GB04156

PATIENT
  Sex: Female

DRUGS (7)
  1. CLOZARIL [Suspect]
     Indication: SCHIZOPHRENIA
     Dosage: UNK
     Route: 048
     Dates: start: 20041101, end: 20051001
  2. CLOZARIL [Suspect]
     Dosage: 350 MG, UNK
     Route: 048
     Dates: start: 20100910
  3. CLOZARIL [Suspect]
     Dosage: 300 MG, UNK
     Route: 048
     Dates: start: 20100913
  4. CLOZARIL [Suspect]
     Dosage: 250 MG, UNK
     Route: 048
  5. VALPROATE SODIUM [Concomitant]
     Indication: AFFECTIVE DISORDER
     Dosage: 1250 MG, UNK
     Route: 048
     Dates: start: 20100718
  6. CARBIMAZOLE [Concomitant]
     Indication: HYPERTHYROIDISM
     Dosage: 20 MG, UNK
     Route: 048
     Dates: start: 20101014
  7. HYOSCINE HBR HYT [Concomitant]
     Indication: SALIVARY HYPERSECRETION
     Dosage: 300 UG, UNK
     Route: 048

REACTIONS (6)
  - ANTIPSYCHOTIC DRUG LEVEL INCREASED [None]
  - GOITRE [None]
  - HYPERTHYROIDISM [None]
  - SALIVARY HYPERSECRETION [None]
  - TACHYCARDIA [None]
  - THYROID DISORDER [None]
